FAERS Safety Report 7411004-9 (Version None)
Quarter: 2011Q2

REPORT INFORMATION
  Report Type: 
  Country: None (occurrence: None)
  Receive Date: 20110413
  Receipt Date: 20110405
  Transmission Date: 20111010
  Serious: Yes (Death)
  Sender: FDA-Public Use
  Company Number: IT-TEVA-269691ISR

PATIENT
  Sex: Male

DRUGS (3)
  1. FLUOROURACIL [Suspect]
     Indication: COLON CANCER STAGE IV
     Route: 042
     Dates: start: 20100913, end: 20110127
  2. IRINOTECAN [Suspect]
     Indication: COLON CANCER STAGE IV
     Route: 042
     Dates: start: 20100913, end: 20101220
  3. BEVACIZUMAB [Suspect]
     Indication: COLON CANCER STAGE IV
     Dosage: 300 MILLIGRAM; 300 MG
     Route: 042
     Dates: start: 20100913, end: 20101220

REACTIONS (1)
  - ENTEROCUTANEOUS FISTULA [None]
